FAERS Safety Report 4605502-0 (Version None)
Quarter: 2005Q1

REPORT INFORMATION
  Report Type: 
  Country: None (occurrence: None)
  Receive Date: 20050310
  Receipt Date: 20040825
  Transmission Date: 20050727
  Serious: No
  Sender: FDA-Public Use
  Company Number: US-BRISTOL-MYERS SQUIBB COMPANY-12682662

PATIENT
  Age: 36 Year
  Sex: Female
  Weight: 58 kg

DRUGS (2)
  1. VAGISTAT-1 [Suspect]
     Indication: VAGINAL MYCOSIS
     Route: 067
     Dates: start: 20040820, end: 20010820
  2. PRENATAL VITAMINS [Concomitant]

REACTIONS (4)
  - BURNING SENSATION [None]
  - PREGNANCY [None]
  - UTERINE CONTRACTIONS DURING PREGNANCY [None]
  - VULVAL OEDEMA [None]
